FAERS Safety Report 5850099-0 (Version None)
Quarter: 2008Q3

REPORT INFORMATION
  Report Type: 
  Country: None (occurrence: None)
  Receive Date: 20080819
  Receipt Date: 20080819
  Transmission Date: 20090109
  Serious: Yes (Death, Life-Threatening)
  Sender: FDA-Public Use
  Company Number: US-BOEHRINGER INGELHEIM GMBH, GERMANY-2008-BP-13012RO

PATIENT
  Age: 38 Year
  Sex: Male

DRUGS (2)
  1. METHADONE HCL [Suspect]
     Indication: PAIN
     Dates: start: 20040101
  2. XANAX [Suspect]
     Indication: SEDATIVE THERAPY

REACTIONS (4)
  - DEATH [None]
  - DRUG INTERACTION [None]
  - FEELING ABNORMAL [None]
  - NERVOUS SYSTEM DISORDER [None]
